FAERS Safety Report 8422015-9 (Version None)
Quarter: 2012Q2

REPORT INFORMATION
  Report Type: 
  Country: None (occurrence: None)
  Receive Date: 20120608
  Receipt Date: 20120524
  Transmission Date: 20120825
  Serious: No
  Sender: FDA-Public Use
  Company Number: US-ASTRAZENECA-2011SE53634

PATIENT
  Age: 90 Year
  Sex: Female
  Weight: 49.4 kg

DRUGS (2)
  1. CRESTOR [Suspect]
     Indication: BLOOD CHOLESTEROL ABNORMAL
     Route: 048
     Dates: start: 20110815
  2. CALCIUM SUPPLEMENT [Concomitant]

REACTIONS (7)
  - FAECAL INCONTINENCE [None]
  - DIZZINESS [None]
  - OFF LABEL USE [None]
  - VISION BLURRED [None]
  - DIARRHOEA [None]
  - ADVERSE EVENT [None]
  - HEADACHE [None]
